FAERS Safety Report 12480841 (Version 6)
Quarter: 2017Q1

REPORT INFORMATION
  Report Type: Report from Study
  Country: US (occurrence: US)
  Receive Date: 20160620
  Receipt Date: 20170130
  Transmission Date: 20170428
  Serious: Yes (Hospitalization)
  Sender: FDA-Public Use
  Company Number: US-JNJFOC-20160603395

PATIENT
  Age: 77 Year
  Sex: Male

DRUGS (10)
  1. ONDANSETRON [Concomitant]
     Active Substance: ONDANSETRON
     Indication: NAUSEA
  2. IMBRUVICA [Suspect]
     Active Substance: IBRUTINIB
     Indication: DIFFUSE LARGE B-CELL LYMPHOMA
     Route: 048
     Dates: start: 20160512
  3. IMBRUVICA [Suspect]
     Active Substance: IBRUTINIB
     Indication: CHRONIC LYMPHOCYTIC LEUKAEMIA REFRACTORY
     Route: 048
     Dates: start: 20160512
  4. IMBRUVICA [Suspect]
     Active Substance: IBRUTINIB
     Indication: CHRONIC LYMPHOCYTIC LEUKAEMIA REFRACTORY
     Route: 048
     Dates: start: 20160512
  5. PREDNISONE. [Concomitant]
     Active Substance: PREDNISONE
  6. SMZ-TMP [Concomitant]
     Active Substance: SULFAMETHOXAZOLE\TRIMETHOPRIM
     Route: 065
  7. OMEPRAZOLE. [Concomitant]
     Active Substance: OMEPRAZOLE
     Route: 048
  8. ATOVAQUONE. [Concomitant]
     Active Substance: ATOVAQUONE
  9. IMBRUVICA [Suspect]
     Active Substance: IBRUTINIB
     Indication: DIFFUSE LARGE B-CELL LYMPHOMA
     Route: 048
     Dates: start: 20160512
  10. SIMVASTATIN. [Concomitant]
     Active Substance: SIMVASTATIN
     Indication: BLOOD CHOLESTEROL

REACTIONS (19)
  - Subarachnoid haemorrhage [Unknown]
  - Off label use [Not Recovered/Not Resolved]
  - Cough [Recovering/Resolving]
  - Syncope [Recovering/Resolving]
  - Pneumocephalus [Recovering/Resolving]
  - White blood cell count increased [Not Recovered/Not Resolved]
  - Hemiplegia [Recovering/Resolving]
  - Haemoglobin decreased [Not Recovered/Not Resolved]
  - Bronchopulmonary aspergillosis [Unknown]
  - Enterococcal sepsis [Recovered/Resolved]
  - Thrombocytopenia [Recovered/Resolved]
  - Feeling of despair [Not Recovered/Not Resolved]
  - Platelet count decreased [Not Recovered/Not Resolved]
  - Hyperglycaemia [Recovering/Resolving]
  - Product use issue [Not Recovered/Not Resolved]
  - Constipation [Recovering/Resolving]
  - Red blood cell count decreased [Not Recovered/Not Resolved]
  - Cerebral aspergillosis [Not Recovered/Not Resolved]
  - Drug ineffective for unapproved indication [Unknown]

NARRATIVE: CASE EVENT DATE: 2016
